FAERS Safety Report 7318696-3 (Version None)
Quarter: 2011Q1

REPORT INFORMATION
  Report Type: 
  Country: None (occurrence: None)
  Receive Date: 20110228
  Receipt Date: 20110201
  Transmission Date: 20110831
  Serious: No
  Sender: FDA-Public Use
  Company Number: US-B.I. PHARMACEUTICALS,INC./RIDGEFIELD-2011-BP-03297BP

PATIENT
  Age: 72 Year
  Sex: Female

DRUGS (6)
  1. ESTRADIOL [Concomitant]
     Route: 048
  2. CARVEDILOL [Concomitant]
     Indication: CARDIAC FAILURE CONGESTIVE
     Route: 048
  3. MICARDIS [Suspect]
     Indication: BLOOD PRESSURE
     Dosage: 40 MG
     Route: 048
     Dates: start: 20100101
  4. MICARDIS [Suspect]
     Indication: CARDIAC FAILURE CONGESTIVE
  5. ASPIRIN [Concomitant]
     Route: 048
  6. LASIX [Concomitant]
     Indication: CARDIAC FAILURE CONGESTIVE
     Route: 048

REACTIONS (4)
  - PRURITUS [None]
  - ABDOMINAL DISCOMFORT [None]
  - RASH [None]
  - HALO VISION [None]
